FAERS Safety Report 25607940 (Version 4)
Quarter: 2025Q3

REPORT INFORMATION
  Report Type: Report from Study
  Country: CO (occurrence: CO)
  Receive Date: 20250725
  Receipt Date: 20250812
  Transmission Date: 20251021
  Serious: Yes (Death, Hospitalization, Other)
  Sender: ABBVIE
  Company Number: CO-JNJFOC-20250714199

PATIENT
  Age: 85 Year
  Sex: Male
  Weight: 44 kg

DRUGS (2)
  1. IMBRUVICA [Suspect]
     Active Substance: IBRUTINIB
     Indication: Chronic lymphocytic leukaemia
     Route: 048
     Dates: start: 202206, end: 20250601
  2. SODIUM CHLORIDE [Concomitant]
     Active Substance: SODIUM CHLORIDE
     Indication: Product used for unknown indication

REACTIONS (12)
  - Death [Fatal]
  - Mouth haemorrhage [Unknown]
  - Thrombocytopenia [Recovering/Resolving]
  - Cough [Unknown]
  - Pyrexia [Unknown]
  - Oral mucosal exfoliation [Unknown]
  - Gingival bleeding [Unknown]
  - Delirium [Not Recovered/Not Resolved]
  - Gastric dilatation [Unknown]
  - Product dose omission issue [Unknown]
  - Cardiac failure [Not Recovered/Not Resolved]
  - Chronic lymphocytic leukaemia [Unknown]

NARRATIVE: CASE EVENT DATE: 20250701
